FAERS Safety Report 14435069 (Version 1)
Quarter: 2018Q1

REPORT INFORMATION
  Report Type: Spontaneous
  Country: NL (occurrence: NL)
  Receive Date: 20180125
  Receipt Date: 20180125
  Transmission Date: 20180509
  Serious: Yes (Hospitalization)
  Sender: FDA-Public Use
  Company Number: NL-ASTRAZENECA-2018SE09471

PATIENT
  Age: 68 Year
  Sex: Male
  Weight: 128 kg

DRUGS (15)
  1. LANTUS SOLOSTAR INJ 100E/ML PEN 3 ML [Concomitant]
     Dosage: 1 DD 45 E
  2. FUROSEMIDE. [Concomitant]
     Active Substance: FUROSEMIDE
     Dosage: 2 DD 0.5 STUKS
  3. NOVORAPID FLEXPEN INJVLST 100E/ML [Concomitant]
     Dosage: 1 X PER DAG 8 EENHEDEN
  4. ACETYLSALICYLIC ACID [Interacting]
     Active Substance: ASPIRIN
     Indication: ACUTE MYOCARDIAL INFARCTION
     Route: 048
     Dates: start: 201408
  5. IRBESARTAN. [Concomitant]
     Active Substance: IRBESARTAN
     Dosage: 1 DD 1
  6. ATORVASTATIN [Concomitant]
     Active Substance: ATORVASTATIN
     Dosage: 1 DD 1
  7. NITROGLYCERINE SPRAY SUBLING [Concomitant]
     Dosage: ZO NODIG 1 DD 1 STUKS0.4MG INTERMITTENT
  8. SEVELAMER [Concomitant]
     Active Substance: SEVELAMER
     Dosage: 3 DD 1
  9. MACROGOL [Concomitant]
     Active Substance: POLYETHYLENE GLYCOLS
     Dosage: 3 DD 1
  10. PREGABALIN. [Concomitant]
     Active Substance: PREGABALIN
     Dosage: 1 DD 2
  11. PANTOPRAZOLE [Concomitant]
     Active Substance: PANTOPRAZOLE
     Dosage: 2 DD 1
  12. COLECALCIFEROL [Concomitant]
     Active Substance: CHOLECALCIFEROL
     Dosage: 1 X PER 4 WEKEN 2 ML
  13. METOPROLOL SUCCINATE. [Concomitant]
     Active Substance: METOPROLOL SUCCINATE
     Dosage: 1 DD 1
  14. BRILIQUE [Suspect]
     Active Substance: TICAGRELOR
     Indication: VASCULAR DEVICE USER
     Route: 048
     Dates: start: 20171031, end: 20171201
  15. NOVORAPID FLEXPEN INJVLST 100E/ML [Concomitant]
     Dosage: 2 X PER DAG 6 EENHEDEN

REACTIONS (3)
  - Melaena [Recovering/Resolving]
  - Drug interaction [Recovering/Resolving]
  - Rectal haemorrhage [Recovering/Resolving]

NARRATIVE: CASE EVENT DATE: 20171128
